FAERS Safety Report 16929714 (Version 1)
Quarter: 2019Q4

REPORT INFORMATION
  Report Type: Spontaneous
  Country: CN (occurrence: CN)
  Receive Date: 20191017
  Receipt Date: 20191017
  Transmission Date: 20200122
  Serious: Yes (Hospitalization)
  Sender: FDA-Public Use
  Company Number: CN-PFIZER INC-2019443756

PATIENT
  Age: 40 Year
  Sex: Female

DRUGS (4)
  1. PHARMORUBICIN [Suspect]
     Active Substance: EPIRUBICIN
     Indication: CHEMOTHERAPY
     Dosage: 140 MG, 1X/DAY
     Route: 041
     Dates: start: 20190903, end: 20190903
  2. ENDOXAN [CYCLOPHOSPHAMIDE] [Suspect]
     Active Substance: CYCLOPHOSPHAMIDE
     Indication: CHEMOTHERAPY
     Dosage: 0.9 G, 1X/DAY
     Route: 041
     Dates: start: 20190903, end: 20190903
  3. ZOLADEX [Concomitant]
     Active Substance: GOSERELIN ACETATE
     Indication: CHEMOTHERAPY
     Dosage: 3.6 MG, 1X/DAY
     Route: 058
     Dates: start: 20190903, end: 20190903
  4. AO NUO XIAN [Suspect]
     Active Substance: DEXRAZOXANE
     Indication: ADJUVANT THERAPY
     Dosage: 1250 MG, 1X/DAY
     Route: 041
     Dates: start: 20190903, end: 20190903

REACTIONS (2)
  - Hepatic enzyme increased [Recovering/Resolving]
  - Hepatic function abnormal [Recovering/Resolving]

NARRATIVE: CASE EVENT DATE: 20190923
